FAERS Safety Report 4936448-6 (Version None)
Quarter: 2006Q1

REPORT INFORMATION
  Report Type: 
  Country: None (occurrence: None)
  Receive Date: 20060127
  Receipt Date: 20051024
  Transmission Date: 20060701
  Serious: Yes (Other)
  Sender: FDA-Public Use
  Company Number: 2005147724

PATIENT
  Age: 62 Year
  Sex: Female
  Weight: 65.7716 kg

DRUGS (6)
  1. LYRICA [Suspect]
     Indication: FIBROMYALGIA
     Dosage: 200 MG (100 MG, 2 IN 1 D)
     Dates: start: 20050915, end: 20050101
  2. ALLEGRA [Concomitant]
  3. NASONEX [Concomitant]
  4. AMBIEN [Concomitant]
  5. VICODIN [Concomitant]
  6. ALL OTHER THERAPEUTIC PRODUCTS [Concomitant]

REACTIONS (17)
  - ABASIA [None]
  - ADVERSE EVENT [None]
  - AMNESIA [None]
  - BLINDNESS [None]
  - CHEST PAIN [None]
  - DEHYDRATION [None]
  - DIFFICULTY IN WALKING [None]
  - DIPLOPIA [None]
  - DIZZINESS [None]
  - FALL [None]
  - MALAISE [None]
  - MUSCLE SPASMS [None]
  - MUSCLE STRAIN [None]
  - PAIN [None]
  - POLLAKIURIA [None]
  - VISION BLURRED [None]
  - WEIGHT DECREASED [None]
